FAERS Safety Report 11577635 (Version 1)
Quarter: 2015Q3

REPORT INFORMATION
  Report Type: Spontaneous
  Country: IT (occurrence: IT)
  Receive Date: 20150930
  Receipt Date: 20150930
  Transmission Date: 20151125
  Serious: Yes (Hospitalization)
  Sender: FDA-Public Use
  Company Number: IT-JNJFOC-20150921046

PATIENT
  Age: 31 Year
  Sex: Female

DRUGS (1)
  1. HALOPERIDOL DECANOATE. [Suspect]
     Active Substance: HALOPERIDOL DECANOATE
     Indication: BIPOLAR I DISORDER
     Route: 030
     Dates: end: 201401

REACTIONS (2)
  - Alcohol abuse [Recovered/Resolved]
  - Mania [Recovered/Resolved]
